FAERS Safety Report 9496806 (Version 1)
Quarter: 2013Q3

REPORT INFORMATION
  Report Type: Spontaneous
  Country: CN (occurrence: CN)
  Receive Date: 20130904
  Receipt Date: 20130904
  Transmission Date: 20140515
  Serious: Yes (Other)
  Sender: FDA-Public Use
  Company Number: CN-PFIZER INC-2013250047

PATIENT
  Age: 61 Year
  Sex: Female
  Weight: 47 kg

DRUGS (1)
  1. SOLU-MEDROL [Suspect]
     Indication: CHRONIC OBSTRUCTIVE PULMONARY DISEASE
     Dosage: 40 MG, TWICE DAILY
     Route: 041
     Dates: start: 20120708, end: 20120713

REACTIONS (2)
  - Exophthalmos [Recovering/Resolving]
  - Insomnia [Recovering/Resolving]
